FAERS Safety Report 5233360-2 (Version None)
Quarter: 2007Q1

REPORT INFORMATION
  Report Type: 
  Country: None (occurrence: None)
  Receive Date: 20070206
  Receipt Date: 20070206
  Transmission Date: 20070707
  Serious: Yes (Life-Threatening)
  Sender: FDA-Public Use
  Company Number: None

PATIENT
  Sex: Female
  Weight: 68.9467 kg

DRUGS (1)
  1. MOTRIN [Suspect]
     Indication: PAIN IN EXTREMITY
     Dosage: 200 MG  EVERY 6 HOURS
     Dates: start: 20070107, end: 20070107

REACTIONS (10)
  - ANXIETY [None]
  - ASTHENIA [None]
  - CEREBROVASCULAR ACCIDENT [None]
  - DIARRHOEA [None]
  - DYSPHEMIA [None]
  - DYSSTASIA [None]
  - HYPERHIDROSIS [None]
  - INJURY [None]
  - MALAISE [None]
  - VOMITING [None]
